FAERS Safety Report 9391349 (Version 1)
Quarter: 2013Q3

REPORT INFORMATION
  Report Type: Spontaneous
  Country: US (occurrence: US)
  Receive Date: 20130709
  Receipt Date: 20130709
  Transmission Date: 20140515
  Serious: No
  Sender: FDA-Public Use
  Company Number: US-B.I. PHARMACEUTICALS,INC./RIDGEFIELD-2013-BI-19238BP

PATIENT
  Age: 50 Year
  Sex: Male
  Weight: 82 kg

DRUGS (2)
  1. COMBIVENT [Suspect]
     Indication: ASTHMA
     Dosage: STRENGTH: 18 MCG / 103 MCG;
     Route: 055
     Dates: start: 2007, end: 201306
  2. COMBIVENT [Suspect]
     Indication: ASTHMA
     Dosage: STRENGTH: 20 MCG / 100 MCG;
     Route: 055
     Dates: start: 201306

REACTIONS (5)
  - Off label use [Recovered/Resolved]
  - Off label use [Not Recovered/Not Resolved]
  - Drug prescribing error [Recovered/Resolved]
  - Drug prescribing error [Not Recovered/Not Resolved]
  - Product quality issue [Recovered/Resolved]
